FAERS Safety Report 8739422 (Version 8)
Quarter: 2016Q3

REPORT INFORMATION
  Report Type: Spontaneous
  Country: US (occurrence: US)
  Receive Date: 20120823
  Receipt Date: 20160907
  Transmission Date: 20161109
  Serious: Yes (Hospitalization, Disabling, Other)
  Sender: FDA-Public Use
  Company Number: US-009507513-1208USA006290

PATIENT
  Sex: Female
  Weight: 68.27 kg

DRUGS (3)
  1. FOSAMAX [Suspect]
     Active Substance: ALENDRONATE SODIUM
     Indication: OSTEOPOROSIS PROPHYLAXIS
     Dosage: 70 MG, QW
     Route: 048
     Dates: start: 20020110, end: 20070529
  2. ALENDRONATE SODIUM. [Suspect]
     Active Substance: ALENDRONATE SODIUM
     Dosage: 70 MG, QW
     Route: 048
     Dates: start: 20091112, end: 20100907
  3. ALENDRONATE SODIUM. [Suspect]
     Active Substance: ALENDRONATE SODIUM
     Dosage: 70 MG, QW
     Route: 048
     Dates: start: 20080609, end: 20081226

REACTIONS (21)
  - Tooth fracture [Unknown]
  - Dental caries [Unknown]
  - Sciatica [Unknown]
  - Osteolysis [Unknown]
  - Osteopenia [Unknown]
  - Pain in extremity [Unknown]
  - Cholecystectomy [Unknown]
  - Appendicectomy [Unknown]
  - Intramedullary rod insertion [Unknown]
  - Femur fracture [Unknown]
  - Femur fracture [Unknown]
  - Musculoskeletal pain [Unknown]
  - Femur fracture [Unknown]
  - Osteoarthritis [Unknown]
  - Bone density decreased [Unknown]
  - Bursitis [Unknown]
  - Intervertebral disc protrusion [Unknown]
  - Multiple fractures [Unknown]
  - Osteoporosis [Unknown]
  - Bone disorder [Unknown]
  - Tooth extraction [Unknown]

NARRATIVE: CASE EVENT DATE: 20080103
